FAERS Safety Report 13763846 (Version 2)
Quarter: 2017Q3

REPORT INFORMATION
  Report Type: Spontaneous
  Country: US (occurrence: US)
  Receive Date: 20170718
  Receipt Date: 20170719
  Transmission Date: 20171127
  Serious: No
  Sender: FDA-Public Use
  Company Number: US-009507513-1707USA005488

PATIENT
  Sex: Female

DRUGS (1)
  1. NEXPLANON [Suspect]
     Active Substance: ETONOGESTREL
     Dosage: UNK, UNKNOWN
     Route: 059
     Dates: start: 201606

REACTIONS (2)
  - Obesity [Not Recovered/Not Resolved]
  - Maternal exposure during pregnancy [Recovered/Resolved]
